FAERS Safety Report 8815587 (Version 3)
Quarter: 2013Q1

REPORT INFORMATION
  Report Type: Spontaneous
  Country: US (occurrence: US)
  Receive Date: 20120928
  Receipt Date: 20130315
  Transmission Date: 20140127
  Serious: Yes (Hospitalization)
  Sender: FDA-Public Use
  Company Number: US-ELI_LILLY_AND_COMPANY-US201209005757

PATIENT
  Sex: Male
  Weight: 111.11 kg

DRUGS (13)
  1. HUMULIN REGULAR [Suspect]
     Indication: DIABETES MELLITUS INADEQUATE CONTROL
     Dosage: UNK UNK, TID
     Route: 058
     Dates: start: 20010713
  2. HUMULIN REGULAR [Suspect]
     Dosage: 25 U, EACH MORNING
     Route: 058
  3. HUMULIN REGULAR [Suspect]
     Dosage: 23 U, QD
     Route: 058
  4. HUMULIN REGULAR [Suspect]
     Dosage: 18 U, EACH EVENING
     Route: 058
  5. HUMALOG LISPRO [Suspect]
     Indication: DIABETES MELLITUS INADEQUATE CONTROL
     Dosage: UNK, PRN
     Route: 058
     Dates: start: 1993
  6. HUMALOG LISPRO [Suspect]
     Dosage: UNK
     Route: 058
     Dates: end: 20130117
  7. LANTUS [Concomitant]
  8. ENALAPRIL [Concomitant]
  9. SPIRONOLACTONE [Concomitant]
  10. AMLODIPINE [Concomitant]
  11. LASIX [Concomitant]
  12. METOPROLOL [Concomitant]
  13. IMDUR [Concomitant]

REACTIONS (3)
  - Ischaemic cardiomyopathy [Unknown]
  - Angina pectoris [Recovered/Resolved]
  - Dyspnoea [Unknown]
